FAERS Safety Report 9558336 (Version 1)
Quarter: 2013Q3

REPORT INFORMATION
  Report Type: Spontaneous
  Country: TR (occurrence: TR)
  Receive Date: 20130926
  Receipt Date: 20130926
  Transmission Date: 20140515
  Serious: Yes (Hospitalization)
  Sender: FDA-Public Use
  Company Number: TR-PERRIGO-13TR009479

PATIENT
  Age: 64 Year
  Sex: Female

DRUGS (3)
  1. LANSOPRAZOLE 15 MG 3T3 [Suspect]
     Indication: PRODUCT USED FOR UNKNOWN INDICATION
     Dosage: 30 MG, QD
     Route: 048
  2. PHENYTOIN [Concomitant]
     Indication: PROPHYLAXIS
     Dosage: 600 MG, QD
     Route: 065
  3. DRUGS USED IN DIABETES [Concomitant]
     Indication: TYPE 2 DIABETES MELLITUS
     Dosage: UNK
     Route: 048

REACTIONS (2)
  - Toxic epidermal necrolysis [Recovered/Resolved]
  - Confusional state [Recovered/Resolved]
